FAERS Safety Report 4266153-3 (Version None)
Quarter: 2004Q1

REPORT INFORMATION
  Report Type: 
  Country: None (occurrence: None)
  Receive Date: 20040106
  Receipt Date: 20031226
  Transmission Date: 20041129
  Serious: Yes (Hospitalization)
  Sender: FDA-Public Use
  Company Number: JP-JNJFOC-20031005509

PATIENT
  Age: 70 Year
  Sex: Female

DRUGS (2)
  1. OFLOXACIN [Suspect]
     Indication: NASOPHARYNGITIS
     Dosage: ORAL
     Route: 048
     Dates: start: 20011001
  2. PL (OTHER COLD COMBINATION PREPARATIONS) [Suspect]
     Indication: NASOPHARYNGITIS
     Dosage: ORAL
     Route: 048
     Dates: start: 20011001

REACTIONS (3)
  - DIARRHOEA [None]
  - DUODENAL ULCER HAEMORRHAGE [None]
  - REFLUX OESOPHAGITIS [None]
